FAERS Safety Report 9384949 (Version 1)
Quarter: 2013Q3

REPORT INFORMATION
  Report Type: Spontaneous
  Country: US (occurrence: US)
  Receive Date: 20130705
  Receipt Date: 20130705
  Transmission Date: 20140515
  Serious: No
  Sender: FDA-Public Use
  Company Number: US-GLAXOSMITHKLINE-A1016701A

PATIENT
  Age: 59 Year
  Sex: Female

DRUGS (5)
  1. BENLYSTA [Suspect]
     Indication: SYSTEMIC LUPUS ERYTHEMATOSUS
     Dosage: 10MGK VARIABLE DOSE
     Route: 042
     Dates: start: 201105, end: 201301
  2. METHOTREXATE [Concomitant]
  3. PLAQUENIL [Concomitant]
  4. VITAMIN D [Concomitant]
  5. MULTIPLE MEDICATIONS [Concomitant]
     Indication: HYPERTENSION

REACTIONS (1)
  - Drug ineffective [Not Recovered/Not Resolved]
